FAERS Safety Report 8393270-9 (Version None)
Quarter: 2012Q2

REPORT INFORMATION
  Report Type: 
  Country: None (occurrence: None)
  Receive Date: 20120529
  Receipt Date: 20120529
  Transmission Date: 20120825
  Serious: Yes (Other)
  Sender: FDA-Public Use
  Company Number: US-PFIZER INC-2012125066

PATIENT
  Sex: Female
  Weight: 109 kg

DRUGS (6)
  1. CLONIDINE [Concomitant]
     Indication: HYPERTENSION
     Dosage: 0.1 MG, 3X/DAY
  2. HYDRALAZINE [Concomitant]
     Indication: HYPERTENSION
     Dosage: 100 MG, 2X/DAY
  3. PLAVIX [Concomitant]
     Dosage: UNK
     Dates: start: 20081101
  4. NORVASC [Concomitant]
     Indication: HYPERTENSION
     Dosage: 10 MG, DAILY
  5. LIPITOR [Suspect]
     Indication: BLOOD TRIGLYCERIDES INCREASED
     Dosage: 80 MG, DAILY
     Dates: start: 20081101
  6. COREG [Concomitant]
     Indication: HYPERTENSION
     Dosage: 25 MG, 2X/DAY

REACTIONS (7)
  - DEPRESSION [None]
  - ACTIVITIES OF DAILY LIVING IMPAIRED [None]
  - RENAL FAILURE [None]
  - VASCULAR DEMENTIA [None]
  - CEREBROVASCULAR ACCIDENT [None]
  - CHOLELITHIASIS [None]
  - MEMORY IMPAIRMENT [None]
